FAERS Safety Report 15979204 (Version 1)
Quarter: 2019Q1

REPORT INFORMATION
  Report Type: Spontaneous
  Country: US (occurrence: US)
  Receive Date: 20190124
  Receipt Date: 20190124
  Transmission Date: 20190418
  Serious: No
  Sender: FDA-Public Use
  Company Number: None

PATIENT
  Age: 80 Year
  Sex: Female

DRUGS (1)
  1. H.P. ACTHAR [Suspect]
     Active Substance: CORTICOTROPIN
     Indication: NEPHROTIC SYNDROME
     Dosage: ?          OTHER DOSE:80 UNITS;OTHER FREQUENCY:OTHER;?
     Route: 058
     Dates: start: 20181113, end: 20190113

REACTIONS (1)
  - Dysuria [None]

NARRATIVE: CASE EVENT DATE: 20190124
